FAERS Safety Report 8591108-8 (Version None)
Quarter: 2012Q3

REPORT INFORMATION
  Report Type: 
  Country: None (occurrence: None)
  Receive Date: 20120813
  Receipt Date: 20120731
  Transmission Date: 20120928
  Serious: Yes (Hospitalization)
  Sender: FDA-Public Use
  Company Number: CHPA2012US017176

PATIENT
  Age: 84 Year
  Sex: Female

DRUGS (4)
  1. VITAMINS NOS [Concomitant]
  2. IRON [Concomitant]
  3. SYNTHROID [Concomitant]
  4. BENEFIBER W/ WHEAT DEXTRIN [Suspect]
     Indication: COLON CANCER
     Dosage: 1/2 TSP ONCE PER DAY
     Route: 048

REACTIONS (2)
  - BLOOD COUNT ABNORMAL [None]
  - OFF LABEL USE [None]
